FAERS Safety Report 16126808 (Version 1)
Quarter: 2019Q1

REPORT INFORMATION
  Report Type: Spontaneous
  Country: FR (occurrence: FR)
  Receive Date: 20190328
  Receipt Date: 20190328
  Transmission Date: 20190418
  Serious: Yes (Other)
  Sender: FDA-Public Use
  Company Number: FR-ACCORD-116043

PATIENT
  Age: 55 Year
  Sex: Female

DRUGS (12)
  1. PROPIONATE DE FLUTICASONE/XINAFOATE DE SALMETEROL [Concomitant]
  2. QUETIAPINE/QUETIAPINE FUMARATE [Concomitant]
  3. PANTOPRAZOLE [Concomitant]
     Active Substance: PANTOPRAZOLE
  4. DIAZEPAM. [Concomitant]
     Active Substance: DIAZEPAM
  5. SERTRALINE [Suspect]
     Active Substance: SERTRALINE HYDROCHLORIDE
     Indication: DEPRESSION
     Route: 048
  6. ATORVASTATIN/ATORVASTATIN CALCIUM [Concomitant]
  7. SALBUTAMOL (SULFATE DE)/SULFATE DE SALBUTAMOL [Concomitant]
  8. NORMACOL [Concomitant]
     Active Substance: HERBALS\KARAYA GUM
  9. ZOPICLONE [Concomitant]
     Active Substance: ZOPICLONE
  10. IBUPROFEN. [Concomitant]
     Active Substance: IBUPROFEN
  11. LETROZOLE. [Suspect]
     Active Substance: LETROZOLE
     Indication: BREAST CANCER
     Route: 048
     Dates: start: 201804
  12. LAMOTRIGINE. [Concomitant]
     Active Substance: LAMOTRIGINE

REACTIONS (3)
  - Fall [Unknown]
  - Gait deviation [Not Recovered/Not Resolved]
  - Muscular weakness [Not Recovered/Not Resolved]

NARRATIVE: CASE EVENT DATE: 2018
